FAERS Safety Report 10063292 (Version 2)
Quarter: 2014Q2

REPORT INFORMATION
  Report Type: Spontaneous
  Country: PE (occurrence: PE)
  Receive Date: 20140407
  Receipt Date: 20140407
  Transmission Date: 20141212
  Serious: Yes (Other)
  Sender: FDA-Public Use
  Company Number: PE-TEVA-471013USA

PATIENT
  Age: 69 Year
  Sex: Female
  Weight: 52 kg

DRUGS (12)
  1. RIBOMUSTIN [Suspect]
     Indication: NON-HODGKIN^S LYMPHOMA UNSPECIFIED HISTOLOGY INDOLENT STAGE IV
     Dosage: FREQUENCY: 2 IN 3 WEEKS; CYCLIC
     Route: 042
     Dates: start: 20140304
  2. RIBOMUSTIN [Suspect]
     Indication: NON-HODGKIN^S LYMPHOMA UNSPECIFIED HISTOLOGY INDOLENT STAGE IV
     Dosage: FREQUENCY: 2 IN 3 WEEKS; CYCLIC
     Route: 042
     Dates: start: 20140305
  3. RITUXIMAB [Concomitant]
     Indication: NON-HODGKIN^S LYMPHOMA UNSPECIFIED HISTOLOGY INDOLENT STAGE IV
     Dosage: FREQUENCY: ONCE IN 21 DAYS; CYCLIC
     Route: 042
     Dates: start: 20140303
  4. DEXAMETHASONE [Concomitant]
     Route: 042
     Dates: start: 20140304
  5. METHYLPREDNISOLONE [Concomitant]
     Route: 042
     Dates: start: 20140303
  6. RANITIDINE [Concomitant]
     Route: 042
     Dates: start: 20140303
  7. CHLORPHENIRAMINE [Concomitant]
     Route: 042
     Dates: start: 20140303
  8. PARACETAMOL [Concomitant]
     Route: 048
     Dates: start: 20140303
  9. ESOMEPRAZOLE [Concomitant]
     Route: 065
  10. PEGFILGRASTIM [Concomitant]
     Route: 058
  11. PREDNISONE [Concomitant]
     Dosage: 40 MILLIGRAM DAILY;
     Route: 048
  12. GRANISETRON [Concomitant]
     Route: 042
     Dates: start: 20140304

REACTIONS (6)
  - Enteritis [Recovered/Resolved]
  - Nausea [Recovered/Resolved]
  - Hypoalbuminaemia [Recovered/Resolved]
  - Oedema [Recovered/Resolved]
  - Diarrhoea [Recovered/Resolved]
  - Pyrexia [Recovered/Resolved]
